FAERS Safety Report 6212180-6 (Version None)
Quarter: 2009Q2

REPORT INFORMATION
  Report Type: 
  Country: None (occurrence: None)
  Receive Date: 20090602
  Receipt Date: 20090526
  Transmission Date: 20091009
  Serious: Yes (Other)
  Sender: FDA-Public Use
  Company Number: JP-SANOFI-SYNTHELABO-A01200904571

PATIENT
  Sex: Female

DRUGS (4)
  1. CALCIUM LEVOFOLINATE [Suspect]
     Indication: RECTAL CANCER
     Dosage: UNK
     Route: 041
     Dates: start: 20090415, end: 20090415
  2. FLUOROURACIL [Suspect]
     Indication: RECTAL CANCER
     Dosage: UNK
     Route: 041
     Dates: start: 20090415, end: 20090416
  3. AVASTIN [Suspect]
     Indication: RECTAL CANCER
     Route: 041
     Dates: start: 20090415, end: 20090415
  4. ELPLAT [Suspect]
     Indication: RECTAL CANCER
     Dosage: UNK
     Route: 041
     Dates: start: 20090415, end: 20090415

REACTIONS (3)
  - ABDOMINAL PAIN [None]
  - DISSEMINATED INTRAVASCULAR COAGULATION [None]
  - MULTI-ORGAN FAILURE [None]
